FAERS Safety Report 7230862-4 (Version None)
Quarter: 2011Q1

REPORT INFORMATION
  Report Type: 
  Country: None (occurrence: None)
  Receive Date: 20110118
  Receipt Date: 20101126
  Transmission Date: 20110831
  Serious: Yes (Death, Life-Threatening, Other)
  Sender: FDA-Public Use
  Company Number: FR-ROCHE-687694

PATIENT
  Sex: Female
  Weight: 55 kg

DRUGS (6)
  1. APRANAX [Suspect]
     Dosage: 1 TABLET IN THE MORNING AND 1 TABLET IN THE EVENING
     Route: 065
     Dates: start: 20090312, end: 20090415
  2. CORTANCYL [Concomitant]
     Dates: start: 20070701
  3. PRETERAX [Concomitant]
     Dates: start: 20060101
  4. ARAVA [Suspect]
     Route: 048
     Dates: start: 20090312, end: 20090415
  5. CORTANCYL [Concomitant]
     Dates: end: 20060301
  6. MOPRAL [Concomitant]
     Dates: start: 20080801

REACTIONS (3)
  - DRUG RASH WITH EOSINOPHILIA AND SYSTEMIC SYMPTOMS [None]
  - ENTEROCOLITIS INFECTIOUS [None]
  - HISTIOCYTOSIS HAEMATOPHAGIC [None]
